FAERS Safety Report 8500345-X (Version None)
Quarter: 2012Q3

REPORT INFORMATION
  Report Type: 
  Country: None (occurrence: None)
  Receive Date: 20120710
  Receipt Date: 20120702
  Transmission Date: 20120928
  Serious: Yes (Other)
  Sender: FDA-Public Use
  Company Number: US-JNJFOC-20120701112

PATIENT
  Age: 43 Year
  Sex: Female

DRUGS (2)
  1. REMICADE [Suspect]
     Indication: PSORIASIS
     Route: 042
     Dates: start: 20120601, end: 20120601
  2. REMICADE [Suspect]
     Route: 042

REACTIONS (6)
  - PRESYNCOPE [None]
  - INFUSION RELATED REACTION [None]
  - ANXIETY [None]
  - ADVERSE EVENT [None]
  - NAUSEA [None]
  - DIZZINESS [None]
